FAERS Safety Report 19641242 (Version 1)
Quarter: 2021Q3

REPORT INFORMATION
  Report Type: Spontaneous
  Country: DE (occurrence: DE)
  Receive Date: 20210730
  Receipt Date: 20210730
  Transmission Date: 20211014
  Serious: Yes (Death)
  Sender: FDA-Public Use
  Company Number: DE-MALLINCKRODT PHARMACEUTICALS-T202103345

PATIENT
  Age: 22 Year
  Sex: Male
  Weight: 106 kg

DRUGS (2)
  1. HEPARIN [Concomitant]
     Active Substance: HEPARIN SODIUM
     Indication: ANTICOAGULANT THERAPY
     Dosage: UNK, 10000
     Route: 065
  2. UVADEX [Suspect]
     Active Substance: METHOXSALEN
     Indication: GRAFT VERSUS HOST DISEASE IN LIVER
     Dosage: UNK (EXTRACORPOREAL), 4 ECP TREATMENTS, WEEKLY
     Route: 050
     Dates: start: 20210701, end: 20210716

REACTIONS (2)
  - Product use in unapproved indication [Unknown]
  - Intestinal obstruction [Fatal]

NARRATIVE: CASE EVENT DATE: 20210701
